FAERS Safety Report 10794404 (Version 1)
Quarter: 2015Q1

REPORT INFORMATION
  Report Type: Spontaneous
  Country: US (occurrence: US)
  Receive Date: 20150213
  Receipt Date: 20150213
  Transmission Date: 20150721
  Serious: No
  Sender: FDA-Public Use
  Company Number: US-PFIZER INC-2015054497

PATIENT
  Age: 66 Year
  Sex: Male
  Weight: 75 kg

DRUGS (3)
  1. LYRICA [Suspect]
     Active Substance: PREGABALIN
     Indication: NEUROPATHY PERIPHERAL
     Dosage: 50 MG, 3X/DAY
     Route: 048
  2. ENOXAPARIN [Concomitant]
     Active Substance: ENOXAPARIN
     Dosage: 80 MG, 2X/DAY
  3. DIGOXIN. [Concomitant]
     Active Substance: DIGOXIN
     Dosage: 250 ?G, 1X/DAY

REACTIONS (1)
  - Drug ineffective [Unknown]
